FAERS Safety Report 6648986-9 (Version None)
Quarter: 2010Q1

REPORT INFORMATION
  Report Type: 
  Country: None (occurrence: None)
  Receive Date: 20100324
  Receipt Date: 20100315
  Transmission Date: 20100710
  Serious: Yes (Hospitalization)
  Sender: FDA-Public Use
  Company Number: GXKR2010US03066

PATIENT
  Age: 70 Year
  Sex: Male

DRUGS (13)
  1. PREDNISONE TAB [Suspect]
     Indication: RHEUMATOID ARTHRITIS
     Dosage: 8 MG/DAY
     Route: 065
  2. PREDNISONE TAB [Suspect]
     Indication: IMMUNE RECONSTITUTION SYNDROME
     Dosage: 60 MG/DAY
     Route: 065
  3. PREDNISONE TAB [Suspect]
     Dosage: 50 MG/DAY
     Route: 065
  4. PREDNISONE TAB [Suspect]
     Dosage: 15 MG/DAY
     Route: 065
  5. PREDNISONE TAB [Suspect]
     Dosage: 40 MG/DAY
     Route: 065
  6. PREDNISONE TAB [Suspect]
     Dosage: 8 MG/DAY
     Route: 065
  7. AZATHIOPRINE SODIUM [Suspect]
     Indication: RHEUMATOID ARTHRITIS
     Route: 065
  8. ISONIAZID [Suspect]
     Indication: PERITONEAL TUBERCULOSIS
     Dosage: 300 MG/DAY
     Route: 065
  9. RIFAMPICIN [Suspect]
     Indication: PERITONEAL TUBERCULOSIS
     Dosage: 600 MG/DAY
     Route: 065
  10. ETHAMBUTOL (NGX) [Suspect]
     Indication: PERITONEAL TUBERCULOSIS
     Dosage: 1.2 G/DAY
     Route: 065
  11. PYRAZINAMIDE [Suspect]
     Indication: PERITONEAL TUBERCULOSIS
     Dosage: 1.5 G/DAY
     Route: 065
  12. INFLIXIMAB [Suspect]
     Indication: RHEUMATOID ARTHRITIS
     Route: 065
  13. PYRIDOXINE [Concomitant]
     Dosage: 50 MG/DAY
     Route: 065

REACTIONS (15)
  - ABDOMINAL DISTENSION [None]
  - ASCITES [None]
  - CONFUSIONAL STATE [None]
  - DYSPNOEA [None]
  - HEPATITIS [None]
  - HYPERHIDROSIS [None]
  - IMMUNE RECONSTITUTION SYNDROME [None]
  - JAUNDICE [None]
  - LETHARGY [None]
  - MALAISE [None]
  - MENTAL STATUS CHANGES [None]
  - NIGHT SWEATS [None]
  - PERITONEAL TUBERCULOSIS [None]
  - PLEURAL EFFUSION [None]
  - PYREXIA [None]
